FAERS Safety Report 20681589 (Version 1)
Quarter: 2022Q2

REPORT INFORMATION
  Report Type: Spontaneous
  Country: US (occurrence: US)
  Receive Date: 20220406
  Receipt Date: 20220406
  Transmission Date: 20220721
  Serious: No
  Sender: FDA-Public Use
  Company Number: US-BEH-2022143744

PATIENT
  Sex: Female

DRUGS (2)
  1. ZEMAIRA [Suspect]
     Active Substance: .ALPHA.1-PROTEINASE INHIBITOR HUMAN
     Indication: Alpha-1 antitrypsin deficiency
     Dosage: 5460 MILLIGRAM, QW
     Route: 042
     Dates: start: 20201128
  2. OXYGEN [Concomitant]
     Active Substance: OXYGEN

REACTIONS (2)
  - Chest pain [Unknown]
  - Dyspnoea [Unknown]
